FAERS Safety Report 24896115 (Version 1)
Quarter: 2025Q1

REPORT INFORMATION
  Report Type: Spontaneous
  Country: ES (occurrence: ES)
  Receive Date: 20250128
  Receipt Date: 20250128
  Transmission Date: 20250408
  Serious: Yes (Death, Hospitalization)
  Sender: TEVA
  Company Number: None

PATIENT
  Age: 63 Year
  Sex: Male

DRUGS (2)
  1. PIRFENIDONE [Suspect]
     Active Substance: PIRFENIDONE
     Indication: Acute interstitial pneumonitis
     Route: 048
     Dates: start: 20240812, end: 20241015
  2. QUETIAPINE [Suspect]
     Active Substance: QUETIAPINE
     Indication: Agitation
     Route: 048
     Dates: start: 20240812, end: 20241015

REACTIONS (4)
  - Pneumonia [Fatal]
  - Interstitial lung disease [Fatal]
  - Agranulocytosis [Recovered/Resolved]
  - Condition aggravated [Fatal]

NARRATIVE: CASE EVENT DATE: 20240501
